FAERS Safety Report 13802108 (Version 1)
Quarter: 2017Q3

REPORT INFORMATION
  Report Type: Spontaneous
  Country: US (occurrence: US)
  Receive Date: 20170727
  Receipt Date: 20170727
  Transmission Date: 20171127
  Serious: Yes (Hospitalization)
  Sender: FDA-Public Use
  Company Number: None

PATIENT
  Sex: Male
  Weight: 80.1 kg

DRUGS (15)
  1. ELEMENTAL IRON (FERROUS SULFATE) [Concomitant]
  2. MERCAPTOPURINE. [Concomitant]
     Active Substance: MERCAPTOPURINE
  3. ACETAMINOPHEN. [Concomitant]
     Active Substance: ACETAMINOPHEN
  4. MENS MULTIVITAMIN [Concomitant]
  5. POTASSIUM [Concomitant]
     Active Substance: POTASSIUM
  6. REMICADE [Concomitant]
     Active Substance: INFLIXIMAB
  7. HUMIRA [Suspect]
     Active Substance: ADALIMUMAB
     Indication: COLITIS ULCERATIVE
     Dosage: ?          QUANTITY:1 INJECTION(S);OTHER FREQUENCY:4/WK0 2/WK2 1/WK4;OTHER ROUTE:INJECT IN ABDOMEN?
     Dates: start: 20170428, end: 20170526
  8. ONDANSETRON [Concomitant]
     Active Substance: ONDANSETRON
  9. PREDNISONE. [Concomitant]
     Active Substance: PREDNISONE
  10. CANASA SUPPOSITORY [Concomitant]
  11. ALBUTEROL (PROAIR) [Concomitant]
  12. FLOVENT DISKUS [Concomitant]
     Active Substance: FLUTICASONE PROPIONATE
  13. VITAMLFATEIN D [Concomitant]
  14. LORATADINE. [Concomitant]
     Active Substance: LORATADINE
  15. GINGER ROOT CAPSULE [Concomitant]

REACTIONS (10)
  - Chest pain [None]
  - Dehydration [None]
  - Colitis ulcerative [None]
  - Blood pressure decreased [None]
  - Blood potassium decreased [None]
  - Pyrexia [None]
  - Heart rate increased [None]
  - White blood cell count increased [None]
  - Lymphadenopathy [None]
  - Anaemia [None]

NARRATIVE: CASE EVENT DATE: 20170529
